FAERS Safety Report 15896750 (Version 1)
Quarter: 2019Q1

REPORT INFORMATION
  Report Type: Spontaneous
  Country: CN (occurrence: CN)
  Receive Date: 20190131
  Receipt Date: 20190131
  Transmission Date: 20190417
  Serious: Yes (Hospitalization, Other)
  Sender: FDA-Public Use
  Company Number: CN-PFIZER INC-2019038641

PATIENT
  Age: 67 Year
  Sex: Male

DRUGS (3)
  1. DALTEPARIN SODIUM [Suspect]
     Active Substance: DALTEPARIN SODIUM
     Indication: ACUTE CORONARY SYNDROME
     Dosage: 5000 DF, 2X/DAY (Q12H)
     Route: 058
     Dates: start: 20181120, end: 20181126
  2. ASPIRIN (E.C.) [Suspect]
     Active Substance: ASPIRIN
     Indication: ACUTE CORONARY SYNDROME
     Dosage: 100 MG, 1X/DAY (QD)
     Route: 048
     Dates: start: 20181120, end: 20181121
  3. TICAGRELOR. [Suspect]
     Active Substance: TICAGRELOR
     Indication: ACUTE CORONARY SYNDROME
     Dosage: 90 MG, 2X/DAY (BID)
     Route: 048
     Dates: start: 20181120, end: 20181126

REACTIONS (3)
  - Upper gastrointestinal haemorrhage [Recovering/Resolving]
  - Haematemesis [Recovering/Resolving]
  - Abdominal discomfort [Recovering/Resolving]

NARRATIVE: CASE EVENT DATE: 20181121
